FAERS Safety Report 16192851 (Version 1)
Quarter: 2019Q2

REPORT INFORMATION
  Report Type: Spontaneous
  Country: GB (occurrence: GB)
  Receive Date: 20190413
  Receipt Date: 20190413
  Transmission Date: 20190711
  Serious: Yes (Other)
  Sender: FDA-Public Use
  Company Number: GB-JNJFOC-20190408477

PATIENT
  Age: 23 Year
  Sex: Male

DRUGS (2)
  1. REGAINE FOR MEN EXTRA STRENGTH 5% FOAM [Suspect]
     Active Substance: MINOXIDIL
     Indication: ALOPECIA
     Dosage: UNSPECIFIED DOSAGE
     Route: 061
     Dates: start: 20190131
  2. REGAINE FOR MEN EXTRA STRENGTH 5% FOAM [Suspect]
     Active Substance: MINOXIDIL
     Indication: ALOPECIA
     Dosage: UNSPECIFIED DOSAGE
     Route: 061
     Dates: start: 20190131

REACTIONS (8)
  - Hair disorder [Recovered/Resolved]
  - Seizure [Not Recovered/Not Resolved]
  - Product label issue [Unknown]
  - Product use in unapproved indication [Unknown]
  - Pallor [Recovered/Resolved]
  - Hair texture abnormal [Recovered/Resolved]
  - Drug interaction [Not Recovered/Not Resolved]
  - Feeling abnormal [Not Recovered/Not Resolved]

NARRATIVE: CASE EVENT DATE: 20190131
